FAERS Safety Report 4637930-1 (Version None)
Quarter: 2005Q2

REPORT INFORMATION
  Report Type: 
  Country: None (occurrence: None)
  Receive Date: 20050328
  Receipt Date: 20050118
  Transmission Date: 20051028
  Serious: No
  Sender: FDA-Public Use
  Company Number: USA050188692

PATIENT
  Sex: Male

DRUGS (5)
  1. STRATTERA [Suspect]
     Indication: ATTENTION DEFICIT/HYPERACTIVITY DISORDER
     Dosage: 40 MG DAY
     Dates: start: 20050101
  2. ATENOLOL [Concomitant]
  3. AVAPRO [Concomitant]
  4. TRIAMTERENE [Concomitant]
  5. FLOMAX [Concomitant]

REACTIONS (4)
  - DRY THROAT [None]
  - RASH [None]
  - RASH PRURITIC [None]
  - URTICARIA [None]
